FAERS Safety Report 10793359 (Version 1)
Quarter: 2015Q1

REPORT INFORMATION
  Report Type: Spontaneous
  Country: GB (occurrence: GB)
  Receive Date: 20150213
  Receipt Date: 20150213
  Transmission Date: 20150721
  Serious: Yes (Disabling)
  Sender: FDA-Public Use
  Company Number: GB-AUROBINDO-AUR-APL-2015-01235

PATIENT
  Age: 20 Year
  Sex: Female

DRUGS (1)
  1. CLARITHROMYCIN 500MG [Suspect]
     Active Substance: CLARITHROMYCIN
     Indication: SKIN INFECTION
     Dosage: 500 MG, TWO TIMES A DAY
     Route: 048

REACTIONS (5)
  - Chest discomfort [Unknown]
  - Insomnia [Unknown]
  - Hypoaesthesia [Unknown]
  - Pain [Unknown]
  - Palpitations [Unknown]
